FAERS Safety Report 21969905 (Version 1)
Quarter: 2023Q1

REPORT INFORMATION
  Report Type: Spontaneous
  Country: IN (occurrence: IN)
  Receive Date: 20230208
  Receipt Date: 20230208
  Transmission Date: 20230418
  Serious: Yes (Hospitalization, Other)
  Sender: FDA-Public Use
  Company Number: IN-PIRAMAL CRITICAL CARE LIMITED-2023-PEL-000096

PATIENT

DRUGS (4)
  1. ISOFLURANE [Suspect]
     Active Substance: ISOFLURANE
     Indication: Inhalation therapy
     Dosage: UNK
  2. VASOPRESSIN [Suspect]
     Active Substance: VASOPRESSIN
     Indication: Diabetes insipidus
     Dosage: INFUSION
     Route: 065
  3. PHENYTOIN [Suspect]
     Active Substance: PHENYTOIN
     Indication: Product used for unknown indication
     Dosage: UNK
     Route: 065
  4. DESMOPRESSIN [Suspect]
     Active Substance: DESMOPRESSIN
     Indication: Nervous system disorder
     Dosage: UNK
     Route: 065

REACTIONS (2)
  - Posterior reversible encephalopathy syndrome [Recovered/Resolved]
  - Acute hepatic failure [Recovered/Resolved]
